FAERS Safety Report 17808130 (Version 3)
Quarter: 2020Q3

REPORT INFORMATION
  Report Type: Report from Study
  Country: US (occurrence: US)
  Receive Date: 20200520
  Receipt Date: 20200715
  Transmission Date: 20201102
  Serious: No
  Sender: FDA-Public Use
  Company Number: US-PFIZER INC-2020153733

PATIENT
  Age: 67 Year
  Sex: Female

DRUGS (1)
  1. IBRANCE [Suspect]
     Active Substance: PALBOCICLIB
     Indication: BREAST CANCER FEMALE
     Dosage: 125 MG, CYCLIC (ONCE A DAY FOR 21 DAYS ON, AND 7 DAYS OFF)
     Route: 048
     Dates: start: 20200406

REACTIONS (14)
  - Skin bacterial infection [Recovered/Resolved]
  - Constipation [Unknown]
  - Haemorrhoidal haemorrhage [Unknown]
  - Skin haemorrhage [Unknown]
  - Fatigue [Unknown]
  - Tumour marker increased [Unknown]
  - Skin reaction [Recovered/Resolved]
  - Erythema [Unknown]
  - Dry skin [Unknown]
  - Pruritus [Unknown]
  - Hot flush [Unknown]
  - Epistaxis [Recovered/Resolved]
  - Dyspepsia [Unknown]
  - Vertigo [Unknown]

NARRATIVE: CASE EVENT DATE: 2020
